FAERS Safety Report 9133585 (Version 1)
Quarter: 2013Q1

REPORT INFORMATION
  Report Type: Report from Study
  Country: US (occurrence: US)
  Receive Date: 20130301
  Receipt Date: 20130301
  Transmission Date: 20140127
  Serious: Yes (Other)
  Sender: FDA-Public Use
  Company Number: US-ABBOTT-13P-163-1054360-00

PATIENT
  Age: 26 Year
  Sex: Female

DRUGS (4)
  1. HUMIRA [Suspect]
     Indication: CROHN^S DISEASE
     Dates: start: 20121129, end: 20121213
  2. VISTARIL [Concomitant]
     Indication: ANXIETY
     Dosage: 25MGQAM, 100MG QPM
  3. AZATHIOPRINE [Concomitant]
     Indication: CROHN^S DISEASE
  4. PRISTIQ [Concomitant]
     Indication: DEPRESSION

REACTIONS (2)
  - Pruritus allergic [Recovered/Resolved]
  - Urticaria [Recovered/Resolved]
